FAERS Safety Report 24928115 (Version 1)
Quarter: 2025Q1

REPORT INFORMATION
  Report Type: Spontaneous
  Country: AU (occurrence: AU)
  Receive Date: 20250205
  Receipt Date: 20250205
  Transmission Date: 20250409
  Serious: Yes (Hospitalization, Other)
  Sender: GLAND PHARMA LTD
  Company Number: AU-GLANDPHARMA-AU-2025GLNLIT00177

PATIENT
  Age: 52 Year
  Sex: Male
  Weight: 117 kg

DRUGS (34)
  1. FLUOROURACIL [Suspect]
     Active Substance: FLUOROURACIL
     Indication: Rectal cancer metastatic
     Route: 065
     Dates: start: 201906, end: 201910
  2. IRINOTECAN [Suspect]
     Active Substance: IRINOTECAN
     Indication: Rectal cancer stage IV
     Route: 065
     Dates: start: 201906, end: 201910
  3. BEVACIZUMAB [Suspect]
     Active Substance: BEVACIZUMAB
     Indication: Rectal cancer stage IV
     Route: 065
     Dates: start: 201501, end: 201502
  4. BEVACIZUMAB [Suspect]
     Active Substance: BEVACIZUMAB
     Route: 065
     Dates: start: 201505, end: 201510
  5. BEVACIZUMAB [Suspect]
     Active Substance: BEVACIZUMAB
     Route: 065
     Dates: start: 201903
  6. BEVACIZUMAB [Suspect]
     Active Substance: BEVACIZUMAB
     Route: 065
     Dates: start: 201904
  7. BEVACIZUMAB [Suspect]
     Active Substance: BEVACIZUMAB
     Route: 065
     Dates: start: 201904
  8. BEVACIZUMAB [Suspect]
     Active Substance: BEVACIZUMAB
     Route: 065
     Dates: start: 201906
  9. BEVACIZUMAB [Suspect]
     Active Substance: BEVACIZUMAB
     Route: 065
     Dates: start: 201907, end: 201910
  10. LEUCOVORIN [Suspect]
     Active Substance: LEUCOVORIN\LEUCOVORIN CALCIUM
     Indication: Rectal cancer stage IV
     Route: 065
     Dates: start: 201906
  11. OSTEOVIT D [Concomitant]
     Indication: Vitamin D deficiency
     Route: 065
     Dates: start: 201101, end: 201105
  12. OSTEOVIT D [Concomitant]
     Route: 065
     Dates: start: 201012
  13. OSTEOVIT D [Concomitant]
     Route: 065
     Dates: start: 201408, end: 201409
  14. OSTEOVIT D [Concomitant]
     Route: 065
     Dates: start: 201503, end: 201504
  15. OSTEOVIT D [Concomitant]
     Route: 065
     Dates: start: 201505, end: 201510
  16. OSTEOVIT D [Concomitant]
     Route: 065
     Dates: start: 201511, end: 201512
  17. OSTEOVIT D [Concomitant]
     Route: 065
     Dates: start: 201602, end: 201612
  18. OSTEOVIT D [Concomitant]
     Route: 065
     Dates: start: 201607, end: 201610
  19. OSTEOVIT D [Concomitant]
     Route: 065
     Dates: start: 201911, end: 201912
  20. OSTEOVIT D [Concomitant]
     Route: 065
     Dates: start: 202001, end: 202002
  21. LOPERAMIDE [Concomitant]
     Active Substance: LOPERAMIDE
     Indication: Neuropathy peripheral
     Route: 065
     Dates: start: 201007, end: 201009
  22. LOPERAMIDE [Concomitant]
     Active Substance: LOPERAMIDE
     Indication: Diarrhoea
     Route: 065
     Dates: start: 201501, end: 201502
  23. LOPERAMIDE [Concomitant]
     Active Substance: LOPERAMIDE
     Indication: Diarrhoea
     Route: 065
     Dates: start: 201505, end: 201502
  24. CAPECITABINE [Concomitant]
     Active Substance: CAPECITABINE
     Indication: Chemotherapy
     Route: 065
     Dates: start: 201501, end: 201502
  25. CAPECITABINE [Concomitant]
     Active Substance: CAPECITABINE
     Route: 065
     Dates: start: 201503, end: 201504
  26. CAPECITABINE [Concomitant]
     Active Substance: CAPECITABINE
     Route: 065
     Dates: start: 201505, end: 201510
  27. CAPECITABINE [Concomitant]
     Active Substance: CAPECITABINE
     Route: 065
     Dates: start: 201806, end: 201812
  28. CAPECITABINE [Concomitant]
     Active Substance: CAPECITABINE
     Route: 065
     Dates: start: 201901, end: 201904
  29. DEXAMETHASONE [Concomitant]
     Active Substance: DEXAMETHASONE
     Indication: Duodenitis
     Route: 065
     Dates: start: 201905
  30. DEXAMETHASONE [Concomitant]
     Active Substance: DEXAMETHASONE
     Route: 065
     Dates: start: 201906
  31. NEXIUM [Concomitant]
     Active Substance: ESOMEPRAZOLE MAGNESIUM
     Indication: Pancreatitis
     Route: 065
     Dates: start: 201905
  32. NEXIUM [Concomitant]
     Active Substance: ESOMEPRAZOLE MAGNESIUM
     Route: 065
     Dates: start: 201906
  33. NEXIUM [Concomitant]
     Active Substance: ESOMEPRAZOLE MAGNESIUM
     Route: 065
     Dates: start: 201907
  34. NEXIUM [Concomitant]
     Active Substance: ESOMEPRAZOLE MAGNESIUM
     Route: 065
     Dates: start: 201910, end: 202004

REACTIONS (1)
  - Sepsis [Unknown]

NARRATIVE: CASE EVENT DATE: 20190101
